FAERS Safety Report 15382520 (Version 1)
Quarter: 2018Q3

REPORT INFORMATION
  Report Type: Spontaneous
  Country: US (occurrence: US)
  Receive Date: 20180913
  Receipt Date: 20180913
  Transmission Date: 20181010
  Serious: Yes (Hospitalization, Other)
  Sender: FDA-Public Use
  Company Number: US-009507513-1809USA002726

PATIENT
  Age: 47 Year
  Sex: Female
  Weight: 88 kg

DRUGS (14)
  1. TACROLIMUS. [Concomitant]
     Active Substance: TACROLIMUS
     Dosage: 1.5 MG BY MOUTH EVERY 12 HOURS
     Route: 048
  2. TACROLIMUS. [Concomitant]
     Active Substance: TACROLIMUS
     Dosage: 3 MG EVERY MORNING AND 2.5 MG EVERY EVENING
  3. MYCOPHENOLATE MOFETIL. [Concomitant]
     Active Substance: MYCOPHENOLATE MOFETIL
     Indication: NAUSEA
     Dosage: 1000 MG, BID
     Route: 048
  4. AMLODIPINE [Concomitant]
     Active Substance: AMLODIPINE BESYLATE
     Indication: NAUSEA
     Dosage: 5 MG, QD
     Route: 048
  5. LEVOFLOXACIN. [Suspect]
     Active Substance: LEVOFLOXACIN
     Dosage: 500 MG, QD
     Route: 048
  6. ONDANSETRON [Suspect]
     Active Substance: ONDANSETRON
     Indication: NAUSEA
     Dosage: 4 MG, TID
     Route: 048
  7. TACROLIMUS. [Concomitant]
     Active Substance: TACROLIMUS
     Dosage: 2.5 MG, Q12H
     Route: 048
  8. CYCLOPHOSPHAMIDE (+) FLUDARABINE PHOSPHATE [Concomitant]
     Indication: PREMEDICATION
  9. SULFAMETHOXAZOLE (+) TRIMETHOPRIM [Concomitant]
     Active Substance: SULFAMETHOXAZOLE\TRIMETHOPRIM
     Dosage: 160 TO 800 MG BY MOUTH TWICE DAILY FOR 6 DAYS PRIOR TO TRANSPLANT
     Route: 048
  10. TACROLIMUS. [Concomitant]
     Active Substance: TACROLIMUS
     Dosage: 1 MG, Q12H
     Route: 048
  11. AMITRIPTYLINE HYDROCHLORIDE. [Suspect]
     Active Substance: AMITRIPTYLINE HYDROCHLORIDE
     Dosage: 50 MG BY MOUTH NIGHTLY
     Route: 048
  12. VALACYCLOVIR HYDROCHLORIDE. [Concomitant]
     Active Substance: VALACYCLOVIR HYDROCHLORIDE
     Dosage: 1000 MG, QD
     Route: 048
  13. NOXAFIL [Suspect]
     Active Substance: POSACONAZOLE
     Dosage: STANDARD RECOMMENDED DOSES
     Route: 048
  14. TACROLIMUS. [Concomitant]
     Active Substance: TACROLIMUS
     Dosage: UNK, BID
     Route: 048

REACTIONS (1)
  - Electrocardiogram QT prolonged [Recovered/Resolved]
